FAERS Safety Report 11570133 (Version 2)
Quarter: 2015Q4

REPORT INFORMATION
  Report Type: Spontaneous
  Country: US (occurrence: US)
  Receive Date: 20150929
  Receipt Date: 20151116
  Transmission Date: 20160304
  Serious: No
  Sender: FDA-Public Use
  Company Number: US-PFIZER INC-2015324999

PATIENT
  Age: 67 Year
  Sex: Female

DRUGS (4)
  1. DORZOLAMIDE HCL AND TIMOLOL MALEATE [Concomitant]
     Active Substance: DORZOLAMIDE HYDROCHLORIDE\TIMOLOL MALEATE
     Dosage: 2 GTT, (1 DROP IN BOTH EYES), 2X/DAY
     Dates: start: 2010
  2. XALATAN [Suspect]
     Active Substance: LATANOPROST
     Indication: CATARACT
     Dosage: 2 GTT, 1X/DAY (0.005 %; 1 DROP BOTH EYES NIGHTLY)
  3. RESTASIS [Concomitant]
     Active Substance: CYCLOSPORINE
     Dosage: 0.05 UNK, UNK
  4. LATANOPROST. [Suspect]
     Active Substance: LATANOPROST
     Dosage: UNK

REACTIONS (3)
  - Eye swelling [Unknown]
  - Drug intolerance [Recovered/Resolved]
  - Eye irritation [Unknown]
